FAERS Safety Report 6076908-0 (Version None)
Quarter: 2009Q1

REPORT INFORMATION
  Report Type: 
  Country: None (occurrence: None)
  Receive Date: 20090213
  Receipt Date: 20090113
  Transmission Date: 20090719
  Serious: No
  Sender: FDA-Public Use
  Company Number: US-BAYER-200910933NA

PATIENT
  Sex: Female

DRUGS (1)
  1. CLIMARA PRO [Suspect]
     Indication: DRUG USE FOR UNKNOWN INDICATION
     Route: 062

REACTIONS (5)
  - APPLICATION SITE ERYTHEMA [None]
  - APPLICATION SITE IRRITATION [None]
  - APPLICATION SITE VESICLES [None]
  - PRODUCT QUALITY ISSUE [None]
  - PRURITUS [None]
